FAERS Safety Report 10203957 (Version 2)
Quarter: 2014Q2

REPORT INFORMATION
  Report Type: Spontaneous
  Country: JP (occurrence: JP)
  Receive Date: 20140529
  Receipt Date: 20140529
  Transmission Date: 20141212
  Serious: Yes (Hospitalization)
  Sender: FDA-Public Use
  Company Number: JP-NOVOPROD-275869

PATIENT
  Age: 30 Year
  Sex: Male

DRUGS (6)
  1. NOVORAPID CHU [Suspect]
     Indication: TYPE 1 DIABETES MELLITUS
     Dosage: 10+10+10 IU, QD
     Route: 058
  2. NOVORAPID CHU [Suspect]
     Dosage: 8+8+6 IU, QD
     Route: 058
     Dates: start: 20061023
  3. LANTUS [Suspect]
     Indication: TYPE 1 DIABETES MELLITUS
     Dosage: 30 IU, QD
     Route: 058
     Dates: end: 20061023
  4. LANTUS [Suspect]
     Dosage: 13 IU QD
     Route: 058
     Dates: start: 20061023
  5. TANATRIL [Concomitant]
     Route: 048
  6. MYONAL                             /01071502/ [Concomitant]

REACTIONS (4)
  - Lack of injection site rotation [Recovered/Resolved]
  - Amyloidosis [Recovered/Resolved]
  - Diabetes mellitus inadequate control [Recovered/Resolved]
  - Hypoglycaemia [Unknown]
